FAERS Safety Report 12563382 (Version 1)
Quarter: 2016Q3

REPORT INFORMATION
  Report Type: Report from Study
  Country: US (occurrence: US)
  Receive Date: 20160715
  Receipt Date: 20160715
  Transmission Date: 20161109
  Serious: Yes (Hospitalization, Other)
  Sender: FDA-Public Use
  Company Number: US-AMGEN-USASL2016090881

PATIENT
  Age: 71 Year
  Sex: Female

DRUGS (1)
  1. ENBREL [Suspect]
     Active Substance: ETANERCEPT
     Indication: PSORIASIS
     Dosage: 25 MG, 2 TIMES/WK
     Route: 065
     Dates: start: 2003

REACTIONS (4)
  - Angiopathy [Unknown]
  - Hypoaesthesia [Not Recovered/Not Resolved]
  - Carotid endarterectomy [Unknown]
  - Angioplasty [Unknown]

NARRATIVE: CASE EVENT DATE: 201606
